FAERS Safety Report 5282879-7 (Version None)
Quarter: 2007Q1

REPORT INFORMATION
  Report Type: 
  Country: None (occurrence: None)
  Receive Date: 20070327
  Receipt Date: 20070315
  Transmission Date: 20070707
  Serious: Yes (Death)
  Sender: FDA-Public Use
  Company Number: GXKR2007CA02584

PATIENT

DRUGS (2)
  1. VALPROIC ACID [Suspect]
     Indication: CONVULSION
  2. ASPIRIN [Suspect]
     Indication: CORONARY ARTERY DISEASE

REACTIONS (1)
  - POST PROCEDURAL HAEMORRHAGE [None]
